FAERS Safety Report 9216448 (Version 1)
Quarter: 2013Q2

REPORT INFORMATION
  Report Type: Spontaneous
  Country: US (occurrence: US)
  Receive Date: 20130408
  Receipt Date: 20130408
  Transmission Date: 20140414
  Serious: No
  Sender: FDA-Public Use
  Company Number: US-BAYER-2013-034410

PATIENT
  Age: 78 Year
  Sex: Male

DRUGS (12)
  1. LEVITRA [Suspect]
     Indication: ERECTILE DYSFUNCTION
     Dosage: 20 MG, UNK
     Route: 048
     Dates: start: 201203, end: 20130309
  2. LANTUS SOLOSTAR [Concomitant]
  3. OMEPRAZOLE [Concomitant]
  4. MUCUS RELIEF MEDICATION [Concomitant]
  5. VITAMIN D [Concomitant]
  6. LITHIUM [Concomitant]
  7. ASPIRIN [Concomitant]
  8. CARVEDILOL [Concomitant]
  9. LOSARTAN [Concomitant]
  10. TAMSULOSIN [Concomitant]
  11. LOVASTATIN [Concomitant]
  12. CALCIUM MAGNESIUM ZINC [Concomitant]

REACTIONS (1)
  - Drug ineffective [None]
